FAERS Safety Report 7640209-7 (Version None)
Quarter: 2011Q3

REPORT INFORMATION
  Report Type: 
  Country: None (occurrence: None)
  Receive Date: 20110728
  Receipt Date: 20090406
  Transmission Date: 20111222
  Serious: Yes (Other)
  Sender: FDA-Public Use
  Company Number: US-BAYER-200919657NA

PATIENT
  Age: 53 Year
  Sex: Male
  Weight: 69 kg

DRUGS (22)
  1. PENTOXIFYLLINE [Concomitant]
  2. ASPIRIN [Concomitant]
  3. CONTRAST MEDIA [Suspect]
     Dates: start: 20070712, end: 20070712
  4. PEPCID [Concomitant]
  5. MAGNEVIST [Suspect]
     Dosage: 20 ML (DAILY DOSE), ONCE,
     Dates: start: 20070124, end: 20070124
  6. ASPIRIN [Concomitant]
     Route: 048
  7. CONTRAST MEDIA [Suspect]
     Indication: NUCLEAR MAGNETIC RESONANCE IMAGING BRAIN
     Route: 042
     Dates: start: 20050329, end: 20050329
  8. GADOLINIUM IN UNSPECIFIED DRUG [Suspect]
     Indication: NUCLEAR MAGNETIC RESONANCE IMAGING
     Dosage: UNK UNK, ONCE
     Dates: start: 20070124, end: 20070124
  9. SIMVASTATIN [Concomitant]
  10. ASCORBIC ACID [Concomitant]
  11. REYATAZ [Concomitant]
  12. MAGNEVIST [Suspect]
     Indication: NUCLEAR MAGNETIC RESONANCE IMAGING ABDOMINAL
     Dates: start: 20060712, end: 20060712
  13. MAGNEVIST [Suspect]
     Indication: NUCLEAR MAGNETIC RESONANCE IMAGING BRAIN
     Dates: start: 20070108, end: 20070108
  14. EPIVIR [Concomitant]
  15. RENAL SOFTGEL [Concomitant]
  16. METOPROLOL SUCCINATE [Concomitant]
     Dosage: 1/2 TABLET ON NON-DIALYSIS DAYS
  17. PERCOCET [Concomitant]
     Indication: PAIN
     Route: 048
  18. COLACE [Concomitant]
  19. RENAGEL [Concomitant]
  20. ZIAGEN [Concomitant]
  21. DILAUDID [Concomitant]
  22. ACETAMINOPHEN [Concomitant]

REACTIONS (13)
  - JOINT RANGE OF MOTION DECREASED [None]
  - ABASIA [None]
  - SKIN INDURATION [None]
  - NEPHROGENIC SYSTEMIC FIBROSIS [None]
  - SKIN TIGHTNESS [None]
  - SKIN SWELLING [None]
  - SKIN FISSURES [None]
  - MOTOR DYSFUNCTION [None]
  - POOR QUALITY SLEEP [None]
  - DEFORMITY [None]
  - ARTERIOSCLEROSIS [None]
  - PRURITUS [None]
  - SKIN EXFOLIATION [None]
